FAERS Safety Report 8220287-7 (Version None)
Quarter: 2012Q1

REPORT INFORMATION
  Report Type: 
  Country: None (occurrence: None)
  Receive Date: 20120320
  Receipt Date: 20120316
  Transmission Date: 20120608
  Serious: No
  Sender: FDA-Public Use
  Company Number: US-PFIZER INC-2012070134

PATIENT
  Sex: Male
  Weight: 82.993 kg

DRUGS (3)
  1. PRAVASTATIN [Concomitant]
     Indication: BLOOD CHOLESTEROL ABNORMAL
     Dosage: 40 MG, DAILY
  2. FLECTOR [Suspect]
     Indication: TENDONITIS
     Dosage: UNK
     Route: 061
     Dates: start: 20120312, end: 20120301
  3. BENICAR [Concomitant]
     Indication: HYPERTENSION
     Dosage: 20 MG, DAILY

REACTIONS (2)
  - DIZZINESS [None]
  - HEADACHE [None]
